FAERS Safety Report 19394333 (Version 1)
Quarter: 2021Q2

REPORT INFORMATION
  Report Type: Report from Study
  Country: GB (occurrence: GB)
  Receive Date: 20210609
  Receipt Date: 20210609
  Transmission Date: 20210717
  Serious: Yes (Other)
  Sender: FDA-Public Use
  Company Number: GB-GW PHARMA-201906GBGW1794

PATIENT

DRUGS (1)
  1. EPIDIOLEX [Suspect]
     Active Substance: CANNABIDIOL
     Indication: SEVERE MYOCLONIC EPILEPSY OF INFANCY
     Dosage: 3 X DAILY
     Route: 048

REACTIONS (7)
  - Platelet count decreased [Not Recovered/Not Resolved]
  - Platelet transfusion [Unknown]
  - Motor dysfunction [Not Recovered/Not Resolved]
  - Infection [Unknown]
  - Visual impairment [Unknown]
  - Dependence on respirator [Unknown]
  - Malaise [Not Recovered/Not Resolved]
